FAERS Safety Report 26194161 (Version 1)
Quarter: 2025Q4

REPORT INFORMATION
  Report Type: Spontaneous
  Country: US (occurrence: US)
  Receive Date: 20251224
  Receipt Date: 20251224
  Transmission Date: 20260118
  Serious: Yes (Hospitalization)
  Sender: Kenvue
  Company Number: US-KENVUE-20251207060

PATIENT
  Age: 59 Year
  Sex: Female

DRUGS (2)
  1. FAMOTIDINE [Suspect]
     Active Substance: FAMOTIDINE
     Indication: Product used for unknown indication
     Dosage: UNK
     Route: 065
  2. Immunoglobulin [Concomitant]
     Indication: Guillain-Barre syndrome
     Dosage: UNK

REACTIONS (1)
  - Pyrexia [Recovered/Resolved]
